FAERS Safety Report 4497687-4 (Version None)
Quarter: 2004Q4

REPORT INFORMATION
  Report Type: 
  Country: None (occurrence: None)
  Receive Date: 20041108
  Receipt Date: 20041025
  Transmission Date: 20050328
  Serious: Yes (Hospitalization)
  Sender: FDA-Public Use
  Company Number: US-JNJFOC-20041000993

PATIENT
  Sex: Male
  Weight: 99.79 kg

DRUGS (2)
  1. NATRECOR [Suspect]
     Dosage: INFUSION DOSE
  2. NATRECOR [Suspect]
     Dosage: BOLUS DOSE

REACTIONS (2)
  - CHEST PAIN [None]
  - TREMOR [None]
